FAERS Safety Report 16344040 (Version 1)
Quarter: 2019Q2

REPORT INFORMATION
  Report Type: Spontaneous
  Country: GB (occurrence: GB)
  Receive Date: 20190522
  Receipt Date: 20190522
  Transmission Date: 20190711
  Serious: Yes (Hospitalization)
  Sender: FDA-Public Use
  Company Number: GB-PFIZER INC-2019209117

PATIENT
  Age: 73 Year
  Sex: Male

DRUGS (8)
  1. METOCLOPRAMIDE. [Concomitant]
     Active Substance: METOCLOPRAMIDE
  2. CARBOPLATIN. [Suspect]
     Active Substance: CARBOPLATIN
     Indication: ADENOCARCINOMA OF COLON
     Dosage: UNKNOWN - SUPPLIED BY TERTIARY CENTRE HOSPITAL
     Route: 042
     Dates: start: 20190311
  3. ONDANSETRON [Concomitant]
     Active Substance: ONDANSETRON
  4. LEVOTHYROXINE. [Concomitant]
     Active Substance: LEVOTHYROXINE
  5. BENZYDAMINE [Concomitant]
     Active Substance: BENZYDAMINE
  6. ETOPOSIDE. [Suspect]
     Active Substance: ETOPOSIDE
     Indication: ADENOCARCINOMA OF COLON
     Dosage: UNKNOWN - SUPPLIED BY TERTIARY CENTRE
     Route: 042
     Dates: start: 20190311
  7. SIMVASTATIN. [Concomitant]
     Active Substance: SIMVASTATIN
  8. ENOXAPARIN [Concomitant]
     Active Substance: ENOXAPARIN

REACTIONS (5)
  - Acute kidney injury [Recovering/Resolving]
  - Vomiting [Recovered/Resolved]
  - Hypophagia [Recovering/Resolving]
  - Constipation [Recovering/Resolving]
  - Hypokalaemia [Recovering/Resolving]

NARRATIVE: CASE EVENT DATE: 20190318
